FAERS Safety Report 7458888-6 (Version None)
Quarter: 2011Q2

REPORT INFORMATION
  Report Type: 
  Country: None (occurrence: None)
  Receive Date: 20110504
  Receipt Date: 20110502
  Transmission Date: 20111010
  Serious: Yes (Hospitalization)
  Sender: FDA-Public Use
  Company Number: IT-BRISTOL-MYERS SQUIBB COMPANY-15689474

PATIENT
  Age: 88 Year
  Sex: Male

DRUGS (8)
  1. CARDURA [Concomitant]
     Dosage: 1 UNIT
     Route: 048
  2. ASPIRIN [Concomitant]
     Dosage: GASTRORESISTANT TABS 1 UNIT
     Route: 048
  3. CASODEX [Concomitant]
     Indication: PROSTATE CANCER
     Dosage: FILM COATED ORAL TABS:1 UNIT
     Route: 048
     Dates: start: 20090407
  4. ALLOPURINOL [Concomitant]
     Dosage: 1DF:300 UNITS NOS SCORED TABS
     Route: 048
  5. MODURETIC 5-50 [Interacting]
     Dosage: 1DF:5MG PLUS 50MG TABS INT ON 7APR11
     Route: 048
     Dates: start: 20090407
  6. CARVEDILOL [Interacting]
     Dosage: INT ON 7APR11
     Route: 048
     Dates: start: 20090407
  7. KARVEA FILM-COATED TABS 150 MG [Suspect]
     Dosage: 1 UNIT
     Route: 048
     Dates: start: 20090407
  8. CORDARONE [Interacting]
     Indication: EXTRASYSTOLES
     Dosage: INT ON 7APR11
     Route: 048
     Dates: start: 20070407

REACTIONS (3)
  - BRADYCARDIA [None]
  - DRUG INTERACTION [None]
  - HYPERKALAEMIA [None]
